FAERS Safety Report 22344658 (Version 1)
Quarter: 2023Q2

REPORT INFORMATION
  Report Type: Spontaneous
  Country: FR (occurrence: FR)
  Receive Date: 20230519
  Receipt Date: 20230519
  Transmission Date: 20230721
  Serious: Yes (Hospitalization)
  Sender: FDA-Public Use
  Company Number: None

PATIENT
  Age: 66 Year
  Sex: Male
  Weight: 78 kg

DRUGS (6)
  1. LANSOPRAZOLE [Suspect]
     Active Substance: LANSOPRAZOLE
     Indication: Product used for unknown indication
     Dosage: 1 DOSAGE FORM,QD
     Route: 048
     Dates: start: 20230324
  2. ATORVASTATIN [Suspect]
     Active Substance: ATORVASTATIN
     Indication: Prophylaxis
     Dosage: 80 MG,QD
     Route: 048
     Dates: start: 20230324
  3. COLCHICINE [Suspect]
     Active Substance: COLCHICINE
     Indication: Pericarditis
     Dosage: 1 DOSAGE FORM, QD
     Route: 048
     Dates: start: 20230407, end: 20230504
  4. ASPIRIN [Suspect]
     Active Substance: ASPIRIN
     Indication: Pericarditis
     Dosage: 1 DOSAGE FORM, QD (3 G/J DU 07 AU 15 APR 23 ; 2 G/J DU 16 AU 22 APR 23 ; 1 G/J 23 AU 29 APR 23)
     Route: 048
     Dates: start: 20230407, end: 20230504
  5. TICAGRELOR [Suspect]
     Active Substance: TICAGRELOR
     Indication: Myocardial infarction
     Dosage: 180 MG, QD (180 MG/J (EN 2 PRISES)
     Route: 048
     Dates: start: 20230408
  6. BISOPROLOL FUMARATE\PERINDOPRIL ARGININE [Suspect]
     Active Substance: BISOPROLOL FUMARATE\PERINDOPRIL ARGININE
     Indication: Myocardial infarction
     Dosage: 1 DOSAGE FORM,QD
     Route: 048
     Dates: start: 20230408

REACTIONS (2)
  - Memory impairment [Not Recovered/Not Resolved]
  - Balance disorder [Not Recovered/Not Resolved]

NARRATIVE: CASE EVENT DATE: 20230401
